FAERS Safety Report 9758940 (Version 1)
Quarter: 2013Q4

REPORT INFORMATION
  Report Type: Spontaneous
  Country: US (occurrence: None)
  Receive Date: 20131216
  Receipt Date: 20131216
  Transmission Date: 20140711
  Serious: Yes (Hospitalization)
  Sender: FDA-Public Use
  Company Number: 079765

PATIENT
  Sex: Male
  Weight: 86 kg

DRUGS (2)
  1. CIMZIA [Suspect]
     Indication: CROHN^S DISEASE
     Dosage: (UNKNOWN DOSE SUBCUTANEOUS)
  2. HUMIRA [Suspect]
     Indication: CROHN^S DISEASE
     Dosage: (40 MG 1X/2 WEEKS SUBCUTANEOUS), (40 MG 1X/2 WEEKS, 2.8571 MG SUBCUTANEOUS)

REACTIONS (2)
  - Crohn^s disease [None]
  - Drug ineffective [None]
